FAERS Safety Report 8250625-0 (Version None)
Quarter: 2012Q2

REPORT INFORMATION
  Report Type: 
  Country: None (occurrence: None)
  Receive Date: 20120402
  Receipt Date: 20120319
  Transmission Date: 20120825
  Serious: Yes (Other)
  Sender: FDA-Public Use
  Company Number: FR-ROCHE-1050195

PATIENT
  Age: 54 Year
  Sex: Male

DRUGS (2)
  1. HERCEPTIN [Suspect]
     Indication: PANCREATIC CARCINOMA
     Dosage: ROUTE, DOSE, FORM AND FREQUENCY: UNSPECIFIED
  2. CETUXIMAB [Suspect]
     Indication: PANCREATIC CARCINOMA
     Dosage: ROUTE, DOSE, FORM AND FREQUENCY: UNSPECIFIED

REACTIONS (1)
  - ULCERATIVE KERATITIS [None]
